FAERS Safety Report 23235642 (Version 2)
Quarter: 2023Q4

REPORT INFORMATION
  Report Type: Report from Study
  Country: CZ (occurrence: CZ)
  Receive Date: 20231128
  Receipt Date: 20231201
  Transmission Date: 20240110
  Serious: Yes (Other)
  Sender: FDA-Public Use
  Company Number: CZ-SA-SAC20230919000673

PATIENT
  Age: 55 Year
  Sex: Female
  Weight: 44 kg

DRUGS (22)
  1. MEDROL [Suspect]
     Active Substance: METHYLPREDNISOLONE
     Indication: Chronic graft versus host disease
     Dosage: 0.5 MG/KG, QD
     Dates: start: 20230920
  2. MEDROL [Suspect]
     Active Substance: METHYLPREDNISOLONE
     Dosage: 12-0-12 MG
     Dates: start: 20231018
  3. MEDROL [Suspect]
     Active Substance: METHYLPREDNISOLONE
     Dosage: 16-0-16 MG
     Dates: start: 20230920
  4. MEDROL [Suspect]
     Active Substance: METHYLPREDNISOLONE
     Dosage: 8-0-8 MG
     Dates: start: 20230920
  5. BELUMOSUDIL MESYLATE [Suspect]
     Active Substance: BELUMOSUDIL MESYLATE
     Indication: Chronic graft versus host disease
     Dosage: FREQ:12 H;200 MG, BID
     Dates: start: 20230905, end: 20230913
  6. RUXOLITINIB [Suspect]
     Active Substance: RUXOLITINIB
     Indication: Chronic graft versus host disease
     Dosage: UNK
     Dates: start: 20230920
  7. OMEPRAZOLE [Concomitant]
     Active Substance: OMEPRAZOLE
     Indication: Gastrointestinal disorder
     Dosage: 40 MG, QD
     Route: 048
     Dates: start: 20230905, end: 20231026
  8. CITALOPRAM [Concomitant]
     Active Substance: CITALOPRAM HYDROBROMIDE
     Indication: Depression
     Dosage: 20 MG, QD
     Route: 048
     Dates: start: 2021, end: 20231026
  9. METHYLPREDNISOLONE [Concomitant]
     Active Substance: METHYLPREDNISOLONE
     Indication: Chronic graft versus host disease
     Dosage: FREQ:12 H;8 MG, BID
     Route: 048
     Dates: start: 20230905
  10. CITALOPRAM [Concomitant]
     Active Substance: CITALOPRAM HYDROBROMIDE
     Dosage: 1 DF, 1X/DAY
  11. TOBRADEX [Concomitant]
     Active Substance: DEXAMETHASONE\TOBRAMYCIN
     Dosage: TO RIGHT EYE 3X DAILY
  12. NIMESULIDE [Concomitant]
     Active Substance: NIMESULIDE
     Dosage: UNK, 2X/DAY
  13. PANTOPRAZOLE SODIUM [Concomitant]
     Active Substance: PANTOPRAZOLE SODIUM
     Dosage: 1-0-0 20 MINUTES BEFORE MEALS
  14. RECUGEL [Concomitant]
     Dosage: TO LEFT EYE AS NEEDED + TO RIGHT EYE EVERY 2 HOURS
  15. URSOSAN FORTE [Concomitant]
     Dosage: UNK, 1X/DAY
  16. CHLORAMPHENICOL\DEXAMETHASONE [Concomitant]
     Active Substance: CHLORAMPHENICOL\DEXAMETHASONE
     Dosage: 1 DROP, Q5D (LEFT EYE 1 DROP 5X DAILY)
  17. COMBAIR [IPRATROPIUM BROMIDE;SALBUTAMOL] [Concomitant]
     Dosage: 2 DF, PRN (2 PUFFS AS NEEDED, MAX 1-0-1 - NO NEED FOR NOW)
  18. DEXAMETHASONE [Concomitant]
     Active Substance: DEXAMETHASONE
     Dosage: 1 DROP, QD (TO RIGHT EYE 1 DROP IN THE EVENING)
  19. NOVALGIN (METAMIZOLE SODIUM) [Concomitant]
     Active Substance: METAMIZOLE SODIUM
     Indication: Pain
     Dosage: 1 DF, Q6H, AS NEEDED (OR ALTERNATES WITH NIMESIL TWICE DAILY)
  20. DIOSMIN\HESPERIDIN [Concomitant]
     Active Substance: DIOSMIN\HESPERIDIN
     Dosage: 2-0-0
  21. VALACYCLOVIR HYDROCHLORIDE [Concomitant]
     Active Substance: VALACYCLOVIR HYDROCHLORIDE
     Indication: Prophylaxis
     Dosage: 1-0-1 PROPHYLAXIS
  22. NYSTATIN [Concomitant]
     Active Substance: NYSTATIN
     Indication: Prophylaxis
     Dosage: NYSTATIN MAGISTRALITER SOLUTION, EVERY 8 HOURS (ORAL CAVITY LAVAGE (ALWAYS HOLD 30-60S))

REACTIONS (4)
  - Hepatotoxicity [Not Recovered/Not Resolved]
  - Aspartate aminotransferase increased [Not Recovered/Not Resolved]
  - Alanine aminotransferase increased [Not Recovered/Not Resolved]
  - Blood bilirubin increased [Not Recovered/Not Resolved]

NARRATIVE: CASE EVENT DATE: 20230913
